FAERS Safety Report 11213566 (Version 1)
Quarter: 2015Q2

REPORT INFORMATION
  Report Type: Spontaneous
  Country: US (occurrence: US)
  Receive Date: 20150623
  Receipt Date: 20150623
  Transmission Date: 20150821
  Serious: Yes (Other)
  Sender: FDA-Public Use
  Company Number: US-PFIZER INC-2015205094

PATIENT
  Age: 40 Year
  Sex: Male

DRUGS (1)
  1. NICOTROL [Suspect]
     Active Substance: NICOTINE
     Dosage: TWO CARTRIDGES (20 MG) EVERY DAY AS NEEDED
     Route: 055

REACTIONS (2)
  - Bipolar disorder [Unknown]
  - Social phobia [Unknown]

NARRATIVE: CASE EVENT DATE: 20140801
